FAERS Safety Report 8622532-2 (Version None)
Quarter: 2012Q3

REPORT INFORMATION
  Report Type: 
  Country: None (occurrence: None)
  Receive Date: 20120827
  Receipt Date: 20120821
  Transmission Date: 20120928
  Serious: No
  Sender: FDA-Public Use
  Company Number: US-PFIZER INC-2012205722

PATIENT
  Age: 70 Year
  Sex: Female
  Weight: 48.526 kg

DRUGS (3)
  1. SUTENT [Suspect]
     Indication: RENAL CANCER METASTATIC
     Dosage: 50 MG, CYCLIC 42 DAYS
     Dates: start: 20110201, end: 20120501
  2. SYNTHROID [Concomitant]
     Indication: THYROID CYST
     Dosage: 0.88 UG, UNK
     Dates: start: 19700101
  3. SUTENT [Suspect]
     Dosage: 50 MG, ALTERNATE DAY
     Dates: start: 20120101

REACTIONS (7)
  - HYPERAESTHESIA [None]
  - IMPAIRED HEALING [None]
  - HERPES ZOSTER [None]
  - WEIGHT DECREASED [None]
  - STOMATITIS [None]
  - BLOOD PRESSURE INCREASED [None]
  - SKIN EXFOLIATION [None]
